FAERS Safety Report 5796957-7 (Version None)
Quarter: 2008Q2

REPORT INFORMATION
  Report Type: 
  Country: None (occurrence: None)
  Receive Date: 20080618
  Receipt Date: 20070607
  Transmission Date: 20081010
  Serious: Yes (Other)
  Sender: FDA-Public Use
  Company Number: 200712114US

PATIENT
  Age: 59 Year
  Sex: Male
  Weight: 77 kg

DRUGS (11)
  1. LANTUS [Suspect]
     Indication: TYPE 1 DIABETES MELLITUS
     Dosage: 30 U HS SC
     Route: 058
  2. HUMALOG [Concomitant]
  3. ASPIRIN [Concomitant]
  4. LASIX [Concomitant]
  5. HYDROCHLOROTHIAZIDE, IRBESARTAN (AVALIDE) [Concomitant]
  6. DILTIAZEM HCL [Concomitant]
  7. MULTI-VITAMIN [Concomitant]
  8. CALCIUM [Concomitant]
  9. MAGNESIUM SULFATE [Concomitant]
  10. ZINC [Concomitant]
  11. PENTOXIFYLLINE [Concomitant]

REACTIONS (3)
  - DRUG INEFFECTIVE [None]
  - GLYCOSYLATED HAEMOGLOBIN INCREASED [None]
  - HYPERGLYCAEMIA [None]
